FAERS Safety Report 24308271 (Version 2)
Quarter: 2024Q3

REPORT INFORMATION
  Report Type: Spontaneous
  Country: BR (occurrence: BR)
  Receive Date: 20240911
  Receipt Date: 20240920
  Transmission Date: 20241016
  Serious: Yes (Life-Threatening)
  Sender: TAKEDA
  Company Number: BR-TAKEDA-2024TUS090016

PATIENT

DRUGS (1)
  1. LISDEXAMFETAMINE DIMESYLATE [Suspect]
     Active Substance: LISDEXAMFETAMINE DIMESYLATE
     Indication: Product used for unknown indication
     Dosage: UNK
     Route: 065

REACTIONS (3)
  - Selective eating disorder [Unknown]
  - Product dose omission in error [Unknown]
  - Malaise [Unknown]
